FAERS Safety Report 7051347-4 (Version None)
Quarter: 2010Q4

REPORT INFORMATION
  Report Type: 
  Country: None (occurrence: None)
  Receive Date: 20101018
  Receipt Date: 20101018
  Transmission Date: 20110411
  Serious: Yes (Disabling)
  Sender: FDA-Public Use
  Company Number: None

PATIENT
  Age: 85 Year
  Sex: Male
  Weight: 82.5547 kg

DRUGS (1)
  1. ACTOS [Suspect]
     Indication: DIABETES MELLITUS
     Dosage: 40 MG DAILY ORAL
     Route: 048
     Dates: start: 20030101, end: 20100101

REACTIONS (4)
  - BLISTER [None]
  - CARDIOVASCULAR DISORDER [None]
  - SCAR [None]
  - SWELLING [None]
